FAERS Safety Report 22368193 (Version 1)
Quarter: 2023Q2

REPORT INFORMATION
  Report Type: Report from Study
  Country: US (occurrence: US)
  Receive Date: 20230525
  Receipt Date: 20230525
  Transmission Date: 20230722
  Serious: No
  Sender: FDA-Public Use
  Company Number: US-002147023-NVSC2023US114418

PATIENT
  Sex: Female

DRUGS (3)
  1. CLOBETASOL [Suspect]
     Active Substance: CLOBETASOL
     Indication: Psoriasis
     Dosage: UNK
     Route: 065
  2. TRIAMCINOLONE [Suspect]
     Active Substance: TRIAMCINOLONE
     Indication: Psoriasis
     Dosage: UNK
     Route: 065
  3. HUMIRA [Suspect]
     Active Substance: ADALIMUMAB
     Indication: Product used for unknown indication
     Dosage: UNK
     Route: 065

REACTIONS (12)
  - Injection site reaction [Unknown]
  - Arthralgia [Unknown]
  - Seborrhoeic keratosis [Unknown]
  - Haemangioma of skin [Unknown]
  - Melanocytic naevus [Unknown]
  - Macule [Unknown]
  - Peripheral swelling [Unknown]
  - Pain [Unknown]
  - Papule [Unknown]
  - Skin plaque [Unknown]
  - Treatment failure [Unknown]
  - Maternal exposure during pregnancy [Unknown]
